FAERS Safety Report 8452530-3 (Version None)
Quarter: 2012Q2

REPORT INFORMATION
  Report Type: 
  Country: None (occurrence: None)
  Receive Date: 20120620
  Receipt Date: 20120413
  Transmission Date: 20120825
  Serious: No
  Sender: FDA-Public Use
  Company Number: US-VERTEX PHARMACEUTICALS INC.-AE-2012-005405

PATIENT
  Sex: Female
  Weight: 61.29 kg

DRUGS (8)
  1. ZANTAC [Concomitant]
     Indication: GASTROOESOPHAGEAL REFLUX DISEASE
     Route: 048
  2. LASIX [Concomitant]
     Indication: POLYURIA
     Route: 048
  3. PEGASYS [Concomitant]
     Indication: HEPATITIS C
     Route: 058
     Dates: start: 20120210, end: 20120413
  4. POTASSIUM CHLORIDE [Concomitant]
     Route: 048
  5. INCIVEK [Suspect]
     Indication: HEPATITIS C
     Route: 048
     Dates: start: 20120210, end: 20120413
  6. FLAXSEED OIL [Concomitant]
     Route: 048
  7. RIBASPHERE [Concomitant]
     Indication: HEPATITIS C
     Route: 048
     Dates: start: 20120210, end: 20120404
  8. RIBASPHERE [Concomitant]
     Route: 048
     Dates: start: 20120404, end: 20120413

REACTIONS (6)
  - OROPHARYNGEAL PAIN [None]
  - HAEMOGLOBIN DECREASED [None]
  - RASH GENERALISED [None]
  - HAEMOPTYSIS [None]
  - PYREXIA [None]
  - PRURITUS [None]
